FAERS Safety Report 20611261 (Version 1)
Quarter: 2022Q1

REPORT INFORMATION
  Report Type: Spontaneous
  Country: US (occurrence: US)
  Receive Date: 20220318
  Receipt Date: 20220318
  Transmission Date: 20220423
  Serious: No
  Sender: FDA-Public Use
  Company Number: US-ORGANON-O2203USA001509

PATIENT
  Sex: Male

DRUGS (2)
  1. PREGNYL [Suspect]
     Active Substance: CHORIOGONADOTROPIN ALFA
     Dosage: PREGNYL 10,000 USP UNIT VIAL/INJECT 1,000 UNITS INTO THE MUSCLE/3 TIMES PER WEEK
  2. WATER [Suspect]
     Active Substance: WATER
     Dosage: UNK

REACTIONS (1)
  - Product dose omission issue [Unknown]
